FAERS Safety Report 4613667-X (Version None)
Quarter: 2005Q1

REPORT INFORMATION
  Report Type: 
  Country: None (occurrence: None)
  Receive Date: 20050318
  Receipt Date: 20050318
  Transmission Date: 20050727
  Serious: Yes (Other)
  Sender: FDA-Public Use
  Company Number: None

PATIENT
  Age: 60 Year
  Sex: Male
  Weight: 103.4201 kg

DRUGS (1)
  1. VIOXX [Suspect]
     Dosage: 1-25MG  A DAY

REACTIONS (1)
  - CEREBROVASCULAR ACCIDENT [None]
